FAERS Safety Report 11109343 (Version 2)
Quarter: 2015Q4

REPORT INFORMATION
  Report Type: Spontaneous
  Country: IT (occurrence: IT)
  Receive Date: 20150513
  Receipt Date: 20151105
  Transmission Date: 20160304
  Serious: Yes (Other)
  Sender: FDA-Public Use
  Company Number: IT-TEVA-561813ACC

PATIENT
  Age: 71 Year
  Sex: Female

DRUGS (4)
  1. SOLDESAM - 8 MG/2 ML SOLUZIONE INIETTABILE [Concomitant]
     Active Substance: DEXAMETHASONE SODIUM PHOSPHATE
     Indication: PRODUCT USED FOR UNKNOWN INDICATION
     Dosage: 8 MG
     Route: 042
     Dates: start: 20150413, end: 20150420
  2. GEMSOL - 40MG/ML CONCENTRATO PER SOLUZIONE PER INFUSIONE - SANDOZ S.P. [Suspect]
     Active Substance: GEMCITABINE HYDROCHLORIDE
     Indication: LUNG ADENOCARCINOMA
     Dosage: 2200 MG CYCLICAL; CONCENTRATE FOR SOLUTION FOR INFUSION
     Route: 042
     Dates: start: 20150413, end: 20150420
  3. CARBOPLATINO TEVA - FLACONE IV 45 ML 10 MG/ML - TEVA PHARMA B.V. [Suspect]
     Active Substance: CARBOPLATIN
     Indication: LUNG ADENOCARCINOMA
     Dosage: 460 MG CYCLICAL
     Route: 042
     Dates: start: 20150413, end: 20150420
  4. ONDANSETRON KABI - 2 MG/ML SOLUZIONE INIETTABILE [Concomitant]
     Indication: PRODUCT USED FOR UNKNOWN INDICATION
     Dosage: 8 MG
     Route: 042
     Dates: start: 20150413, end: 20150420

REACTIONS (2)
  - Epistaxis [Recovered/Resolved]
  - Pancytopenia [Recovered/Resolved]

NARRATIVE: CASE EVENT DATE: 20150427
